FAERS Safety Report 8271567-0 (Version None)
Quarter: 2012Q2

REPORT INFORMATION
  Report Type: 
  Country: None (occurrence: None)
  Receive Date: 20120410
  Receipt Date: 20120405
  Transmission Date: 20120825
  Serious: Yes (Death, Hospitalization)
  Sender: FDA-Public Use
  Company Number: US-GLAXOSMITHKLINE-A0794096A

PATIENT
  Age: 44 Year
  Sex: Male
  Weight: 159.1 kg

DRUGS (3)
  1. ACTOS [Concomitant]
     Dates: start: 20030211, end: 20031101
  2. CELEBREX [Concomitant]
  3. AVANDIA [Suspect]
     Indication: DIABETES MELLITUS
     Dosage: 4MG TWICE PER DAY
     Route: 048
     Dates: start: 19990601, end: 20040216

REACTIONS (3)
  - CARDIAC FAILURE CONGESTIVE [None]
  - CARDIAC DISORDER [None]
  - MYOCARDIAL INFARCTION [None]
